FAERS Safety Report 7116296-1 (Version None)
Quarter: 2010Q4

REPORT INFORMATION
  Report Type: 
  Country: None (occurrence: None)
  Receive Date: 20101122
  Receipt Date: 20101115
  Transmission Date: 20110411
  Serious: Yes (Hospitalization, Congenital Anomaly)
  Sender: FDA-Public Use
  Company Number: A0681586A

PATIENT
  Sex: Female
  Weight: 2.9 kg

DRUGS (6)
  1. PAXIL CR [Suspect]
     Indication: ANXIETY
     Dosage: 25MG PER DAY
     Dates: start: 20030101, end: 20051101
  2. PRENATAL VITAMINS [Concomitant]
  3. INDERAL [Concomitant]
  4. VOLMAX [Concomitant]
     Dates: start: 20050114
  5. AMOXIL [Concomitant]
     Dates: start: 20050114
  6. ENTEX SOLUTION [Concomitant]
     Dates: start: 20050114

REACTIONS (7)
  - ATRIAL SEPTAL DEFECT [None]
  - BICUSPID AORTIC VALVE [None]
  - CONGENITAL AORTIC STENOSIS [None]
  - DRUG EXPOSURE DURING PREGNANCY [None]
  - MULTIPLE CONGENITAL ABNORMALITIES [None]
  - PATENT DUCTUS ARTERIOSUS [None]
  - PULMONARY ARTERY STENOSIS CONGENITAL [None]
